FAERS Safety Report 21608548 (Version 1)
Quarter: 2022Q4

REPORT INFORMATION
  Report Type: Spontaneous
  Country: US (occurrence: None)
  Receive Date: 20221116
  Receipt Date: 20221116
  Transmission Date: 20230113
  Serious: Yes (Hospitalization)
  Sender: FDA-Public Use
  Company Number: None

PATIENT
  Sex: Female

DRUGS (1)
  1. CAPECITABINE [Suspect]
     Active Substance: CAPECITABINE
     Dosage: 1150 BID ORAL?
     Route: 048

REACTIONS (4)
  - Urinary tract infection [None]
  - Pneumonia [None]
  - Therapy interrupted [None]
  - Skin exfoliation [None]
